FAERS Safety Report 9150978 (Version 1)
Quarter: 2013Q1

REPORT INFORMATION
  Report Type: Spontaneous
  Country: US (occurrence: US)
  Receive Date: 20130308
  Receipt Date: 20130308
  Transmission Date: 20140127
  Serious: No
  Sender: FDA-Public Use
  Company Number: US-GLAXOSMITHKLINE-A0996281A

PATIENT
  Age: 39 Year
  Sex: Male

DRUGS (2)
  1. OLUX E [Suspect]
     Indication: PSORIASIS
     Route: 061
  2. UVB THERAPY [Concomitant]

REACTIONS (2)
  - Drug effect decreased [Unknown]
  - Product quality issue [Unknown]
